FAERS Safety Report 7313393-2 (Version None)
Quarter: 2011Q1

REPORT INFORMATION
  Report Type: 
  Country: None (occurrence: None)
  Receive Date: 20110225
  Receipt Date: 20110218
  Transmission Date: 20110831
  Serious: No
  Sender: FDA-Public Use
  Company Number: US-PFIZER INC-2011015162

PATIENT
  Age: 66 Year
  Sex: Female
  Weight: 74 kg

DRUGS (4)
  1. ADVIL CONGESTION RELIEF [Suspect]
     Indication: NASOPHARYNGITIS
     Dosage: 1 TABLET EVERY 4 HOURS
     Route: 048
     Dates: start: 20110114
  2. SUDAFED 12 HOUR [Concomitant]
  3. ADVIL CONGESTION RELIEF [Suspect]
     Indication: NASAL CONGESTION
  4. GLUCOPHAGE [Concomitant]
     Indication: DIABETES MELLITUS
     Dosage: DAILY

REACTIONS (1)
  - DRUG INEFFECTIVE [None]
